FAERS Safety Report 9028722 (Version 2)
Quarter: 2013Q1

REPORT INFORMATION
  Report Type: Spontaneous
  Country: US (occurrence: US)
  Receive Date: 20130124
  Receipt Date: 20130215
  Transmission Date: 20140127
  Serious: Yes (Hospitalization)
  Sender: FDA-Public Use
  Company Number: US-PFIZER INC-2013000082

PATIENT
  Age: 60 Year
  Sex: Male

DRUGS (3)
  1. RAPAMUNE [Suspect]
     Indication: RENAL TRANSPLANT
     Dosage: 1 MG, 4X/DAY
     Route: 048
     Dates: start: 20120620
  2. RAPAMUNE [Suspect]
     Dosage: 03 PILL ONCE A DAY
     Route: 048
  3. LABETALOL [Concomitant]
     Dosage: 150 MG, DAILY
     Route: 048

REACTIONS (2)
  - Sepsis [Unknown]
  - Urinary tract infection [Unknown]
